FAERS Safety Report 17687147 (Version 3)
Quarter: 2020Q3

REPORT INFORMATION
  Report Type: Report from Study
  Country: None (occurrence: US)
  Receive Date: 20200421
  Receipt Date: 20200715
  Transmission Date: 20201102
  Serious: Yes (Hospitalization)
  Sender: FDA-Public Use
  Company Number: US-ABBVIE-20K-163-3371027-00

PATIENT
  Sex: Female
  Weight: 72.64 kg

DRUGS (5)
  1. EUTHYROX [Concomitant]
     Active Substance: LEVOTHYROXINE SODIUM
     Indication: PRODUCT USED FOR UNKNOWN INDICATION
  2. PREDNISONE. [Concomitant]
     Active Substance: PREDNISONE
     Indication: PRODUCT USED FOR UNKNOWN INDICATION
     Dosage: INCREASED DOSE TO 40 MG
  3. MESALAMINE. [Concomitant]
     Active Substance: MESALAMINE
     Indication: PRODUCT USED FOR UNKNOWN INDICATION
  4. CETIRIZINE [Concomitant]
     Active Substance: CETIRIZINE HYDROCHLORIDE
     Indication: PRODUCT USED FOR UNKNOWN INDICATION
  5. HUMIRA [Suspect]
     Active Substance: ADALIMUMAB
     Indication: CROHN^S DISEASE
     Route: 058

REACTIONS (13)
  - Nausea [Recovering/Resolving]
  - Device issue [Unknown]
  - Blood potassium decreased [Recovering/Resolving]
  - Mucous stools [Recovering/Resolving]
  - Blood calcium decreased [Unknown]
  - Hypophagia [Unknown]
  - Dehydration [Recovering/Resolving]
  - Mouth ulceration [Unknown]
  - Vomiting [Recovering/Resolving]
  - Colitis ulcerative [Recovering/Resolving]
  - Viral infection [Recovering/Resolving]
  - Infection [Recovering/Resolving]
  - Diarrhoea haemorrhagic [Unknown]
